FAERS Safety Report 10465534 (Version 1)
Quarter: 2014Q3

REPORT INFORMATION
  Report Type: Spontaneous
  Country: US (occurrence: US)
  Receive Date: 20140919
  Receipt Date: 20140919
  Transmission Date: 20150326
  Serious: Yes (Death)
  Sender: FDA-Public Use
  Company Number: US-BAUSCH-BL-2014-005191

PATIENT
  Age: 48 Year
  Sex: Female

DRUGS (1)
  1. DILTIAZEM HYDROCHLORIDE. [Suspect]
     Active Substance: DILTIAZEM HYDROCHLORIDE
     Indication: PRODUCT USED FOR UNKNOWN INDICATION

REACTIONS (8)
  - Toxicity to various agents [Fatal]
  - Renal failure acute [Fatal]
  - Acute lung injury [Fatal]
  - Metabolic acidosis [Fatal]
  - Nervous system disorder [Fatal]
  - Pneumonia aspiration [Fatal]
  - Hypotension [Fatal]
  - Bradycardia [Fatal]
